FAERS Safety Report 4879824-2 (Version None)
Quarter: 2006Q1

REPORT INFORMATION
  Report Type: 
  Country: None (occurrence: None)
  Receive Date: 20060113
  Receipt Date: 20060104
  Transmission Date: 20060701
  Serious: Yes (Other)
  Sender: FDA-Public Use
  Company Number: FR-JNJFOC-20060101040

PATIENT
  Age: 69 Year
  Sex: Female

DRUGS (2)
  1. REMINYL [Suspect]
     Route: 048
  2. REMINYL [Suspect]
     Route: 048

REACTIONS (1)
  - TRANSAMINASES INCREASED [None]
